FAERS Safety Report 19994936 (Version 1)
Quarter: 2021Q4

REPORT INFORMATION
  Report Type: Spontaneous
  Country: TR (occurrence: TR)
  Receive Date: 20211026
  Receipt Date: 20211026
  Transmission Date: 20220303
  Serious: Yes (Hospitalization)
  Sender: FDA-Public Use
  Company Number: TR-ACCORD-243647

PATIENT
  Age: 73 Year
  Sex: Male

DRUGS (3)
  1. AZACITIDINE [Suspect]
     Active Substance: AZACITIDINE
     Indication: Myelodysplastic syndrome
     Dosage: ONCE DAILY ON DAYS 1 TO 7
     Route: 058
  2. ELTROMBOPAG [Concomitant]
     Active Substance: ELTROMBOPAG
     Dosage: MAXIMUM DOSAGE OF 150 MG/DAY
  3. FILGRASTIM [Concomitant]
     Active Substance: FILGRASTIM
     Dosage: 3 DAYS PER WEEK 48 MIU

REACTIONS (2)
  - Arthritis [Recovered/Resolved]
  - Chondrocalcinosis pyrophosphate [Recovered/Resolved]
